FAERS Safety Report 5616443-4 (Version None)
Quarter: 2008Q1

REPORT INFORMATION
  Report Type: 
  Country: None (occurrence: None)
  Receive Date: 20080207
  Receipt Date: 20080131
  Transmission Date: 20080703
  Serious: Yes (Other)
  Sender: FDA-Public Use
  Company Number: CH-ELI_LILLY_AND_COMPANY-CH200802000043

PATIENT
  Age: 39 Year
  Sex: Female

DRUGS (4)
  1. ZYPREXA [Suspect]
     Indication: DEPRESSION
     Dosage: 2.5 MG, DAILY (1/D)
     Route: 048
     Dates: start: 20071115, end: 20071218
  2. TEMESTA [Concomitant]
     Indication: DEPRESSION
     Dosage: 1 MG, OTHER
     Route: 048
     Dates: start: 20071117
  3. IMOVANE [Concomitant]
     Indication: DEPRESSION
     Dosage: 7.5 MG, DAILY (1/D)
     Route: 048
     Dates: start: 20071117, end: 20071214
  4. JARSIN [Concomitant]
     Indication: DEPRESSION
     Dosage: 300 MG, 3/D
     Route: 048
     Dates: start: 20071114

REACTIONS (1)
  - DRUG EXPOSURE DURING PREGNANCY [None]
